FAERS Safety Report 5587820-5 (Version None)
Quarter: 2007Q4

REPORT INFORMATION
  Report Type: 
  Country: None (occurrence: None)
  Receive Date: 20071210
  Receipt Date: 20070212
  Transmission Date: 20080405
  Serious: Yes (Hospitalization, Other)
  Sender: FDA-Public Use
  Company Number: SPV1-2007-00684

PATIENT
  Age: 17 Year
  Sex: Male

DRUGS (5)
  1. ADDERALL XR 30 [Suspect]
     Dosage: 20 MG, 1X/DAY:QD
  2. LAMICTAL [Suspect]
     Indication: EPILEPSY
     Dosage: 300 MG, 2X/DAY:BID, ORAL
     Route: 048
     Dates: start: 20040101
  3. DOXYCYCLINE HCL [Suspect]
  4. FLUOXETINE [Suspect]
     Dosage: 10 MG, 1X/DAY:QD
  5. MVI (VITAMINS NOS) [Concomitant]

REACTIONS (3)
  - CONVULSION [None]
  - CONVULSIVE THRESHOLD LOWERED [None]
  - DRUG INTERACTION [None]
